FAERS Safety Report 4811417-5 (Version None)
Quarter: 2005Q4

REPORT INFORMATION
  Report Type: 
  Country: None (occurrence: None)
  Receive Date: 20051026
  Receipt Date: 20051026
  Transmission Date: 20060501
  Serious: Yes (Hospitalization, Other)
  Sender: FDA-Public Use
  Company Number: None

PATIENT
  Sex: Male
  Weight: 5.7 kg

DRUGS (3)
  1. CYTARABINE [Suspect]
     Indication: ACUTE MYELOID LEUKAEMIA
     Dosage: SEE IMAGE
     Dates: start: 20050929, end: 20051009
  2. DAUNORUBICIN [Suspect]
     Dosage: SEE IMAGE
     Dates: start: 20050929, end: 20051003
  3. ETOPOSIDE [Suspect]
     Dosage: SEE IMAGE
     Dates: start: 20050929, end: 20051003

REACTIONS (14)
  - CAPILLARY LEAK SYNDROME [None]
  - CARDIOGENIC SHOCK [None]
  - DRUG DOSE OMISSION [None]
  - FLUID OVERLOAD [None]
  - INCREASED UPPER AIRWAY SECRETION [None]
  - INFLAMMATION [None]
  - OEDEMA [None]
  - OXYGEN SATURATION DECREASED [None]
  - PERICARDIAL EFFUSION [None]
  - PULMONARY OEDEMA [None]
  - PYREXIA [None]
  - RESPIRATORY DISTRESS [None]
  - TACHYPNOEA [None]
  - TUMOUR LYSIS SYNDROME [None]
